FAERS Safety Report 8835762 (Version 2)
Quarter: 2013Q1

REPORT INFORMATION
  Report Type: Spontaneous
  Country: CA (occurrence: CA)
  Receive Date: 20121011
  Receipt Date: 20130125
  Transmission Date: 20140127
  Serious: Yes (Other)
  Sender: FDA-Public Use
  Company Number: PHHY2012CA089516

PATIENT
  Age: 80 Year
  Sex: Female

DRUGS (4)
  1. SANDOSTATIN (OCTREOTIDE ACETATE) [Suspect]
     Indication: CARCINOID TUMOUR OF THE SMALL BOWEL
     Dosage: 150 UG, BID
     Route: 058
  2. SANDOSTATIN (OCTREOTIDE ACETATE) [Suspect]
     Dosage: 100 UG, TID
     Route: 058
     Dates: start: 20120925
  3. SANDOSTATIN LAR [Suspect]
     Indication: CARCINOID TUMOUR OF THE SMALL BOWEL
     Dosage: 50 MG, TIW (EVERY 3 WEEKS)
     Route: 030
     Dates: start: 20090505
  4. FERROUS SULFATE [Concomitant]
     Dosage: 300 MG, DAILY
     Dates: start: 20130109

REACTIONS (10)
  - Blood pressure diastolic decreased [Unknown]
  - Condition aggravated [Unknown]
  - Blood pressure systolic increased [Unknown]
  - Fall [Unknown]
  - Mass [Unknown]
  - Local swelling [Unknown]
  - Pain in extremity [Unknown]
  - Erythema [Unknown]
  - Gait disturbance [Unknown]
  - Fatigue [Unknown]
